FAERS Safety Report 10754083 (Version 1)
Quarter: 2015Q1

REPORT INFORMATION
  Report Type: Spontaneous
  Country: US (occurrence: US)
  Receive Date: 20150202
  Receipt Date: 20150202
  Transmission Date: 20150721
  Serious: No
  Sender: FDA-Public Use
  Company Number: US-LEO PHARMA-232107

PATIENT
  Sex: Female

DRUGS (1)
  1. PICATO [Suspect]
     Active Substance: INGENOL MEBUTATE
     Indication: SOLAR LENTIGO

REACTIONS (5)
  - Application site scab [Unknown]
  - Application site discharge [Unknown]
  - Application site vesicles [Unknown]
  - Drug administered at inappropriate site [Unknown]
  - Multiple use of single-use product [Unknown]
